FAERS Safety Report 14383659 (Version 4)
Quarter: 2018Q2

REPORT INFORMATION
  Report Type: Spontaneous
  Country: US (occurrence: US)
  Receive Date: 20180115
  Receipt Date: 20180413
  Transmission Date: 20180711
  Serious: Yes (Other)
  Sender: FDA-Public Use
  Company Number: US-009507513-1801USA002266

PATIENT
  Age: 21 Year
  Sex: Female
  Weight: 46.71 kg

DRUGS (1)
  1. NEXPLANON [Suspect]
     Active Substance: ETONOGESTREL
     Indication: CONTRACEPTION
     Dosage: 1 ROD, EVERY 3 YEARS
     Route: 059
     Dates: start: 20160808, end: 20180125

REACTIONS (12)
  - Device difficult to use [Recovered/Resolved]
  - Device dislocation [Recovered/Resolved]
  - Scar [Unknown]
  - Surgery [Recovered/Resolved]
  - Vaginal haemorrhage [Unknown]
  - Device difficult to use [Recovered/Resolved]
  - Pain in extremity [Unknown]
  - Impaired work ability [Unknown]
  - Complication associated with device [Recovered/Resolved]
  - Pain [Not Recovered/Not Resolved]
  - Injury [Unknown]
  - Limb deformity [Unknown]

NARRATIVE: CASE EVENT DATE: 2016
